FAERS Safety Report 5408119-3 (Version None)
Quarter: 2007Q3

REPORT INFORMATION
  Report Type: 
  Country: None (occurrence: None)
  Receive Date: 20070806
  Receipt Date: 20070806
  Transmission Date: 20080115
  Serious: Yes (Hospitalization)
  Sender: FDA-Public Use
  Company Number: None

PATIENT
  Age: 81 Year
  Sex: Male

DRUGS (1)
  1. NAPROXEN [Suspect]
     Indication: ARTHRALGIA
     Dosage: 375MG BID PO
     Route: 048
     Dates: start: 20070522, end: 20070605

REACTIONS (2)
  - GASTRIC HAEMORRHAGE [None]
  - RENAL IMPAIRMENT [None]
